FAERS Safety Report 16811223 (Version 1)
Quarter: 2019Q3

REPORT INFORMATION
  Report Type: Spontaneous
  Country: ES (occurrence: ES)
  Receive Date: 20190916
  Receipt Date: 20190916
  Transmission Date: 20191005
  Serious: Yes (Other)
  Sender: FDA-Public Use
  Company Number: ES-JNJFOC-20190907167

PATIENT
  Sex: Male

DRUGS (1)
  1. CAELYX [Suspect]
     Active Substance: DOXORUBICIN HYDROCHLORIDE
     Indication: HEPATOCELLULAR CARCINOMA
     Dosage: ADRIAMYCIN-LOADED DC BEADS ADMINISTERED FROM THE RIGHT INTERNAL MAMMARY ARTERY
     Route: 013
     Dates: start: 2015

REACTIONS (3)
  - Product use in unapproved indication [Unknown]
  - Skin necrosis [Recovered/Resolved]
  - Off label use [Unknown]

NARRATIVE: CASE EVENT DATE: 2015
